FAERS Safety Report 18086745 (Version 3)
Quarter: 2020Q4

REPORT INFORMATION
  Report Type: Spontaneous
  Country: US (occurrence: US)
  Receive Date: 20200729
  Receipt Date: 20201009
  Transmission Date: 20210113
  Serious: No
  Sender: FDA-Public Use
  Company Number: US-PFIZER INC-2019294893

PATIENT
  Age: 75 Year
  Sex: Female
  Weight: 75.75 kg

DRUGS (1)
  1. PREMARIN [Suspect]
     Active Substance: ESTROGENS, CONJUGATED
     Indication: HORMONE REPLACEMENT THERAPY
     Dosage: 0.625 MG, DAILY (1 TABLET BY MOUTH DAILY)
     Route: 048

REACTIONS (9)
  - Blood cholesterol increased [Unknown]
  - Alanine aminotransferase decreased [Unknown]
  - Blood alkaline phosphatase increased [Unknown]
  - High density lipoprotein increased [Unknown]
  - Non-high-density lipoprotein cholesterol increased [Unknown]
  - Eosinophil count decreased [Unknown]
  - Glomerular filtration rate decreased [Unknown]
  - Immature granulocyte count increased [Unknown]
  - Low density lipoprotein increased [Unknown]
